FAERS Safety Report 7356815-3 (Version None)
Quarter: 2011Q1

REPORT INFORMATION
  Report Type: 
  Country: None (occurrence: None)
  Receive Date: 20110317
  Receipt Date: 20110307
  Transmission Date: 20110831
  Serious: Yes (Death)
  Sender: FDA-Public Use
  Company Number: IE-AMGEN-IRLSP2011012926

PATIENT
  Age: 92 Year
  Sex: Male

DRUGS (1)
  1. ARANESP [Suspect]
     Indication: RENAL FAILURE CHRONIC
     Dosage: 40 A?G, 2 TIMES/WK
     Route: 058

REACTIONS (1)
  - DEATH [None]
